FAERS Safety Report 4862612-0 (Version None)
Quarter: 2005Q4

REPORT INFORMATION
  Report Type: 
  Country: None (occurrence: None)
  Receive Date: 20051221
  Receipt Date: 20051214
  Transmission Date: 20060501
  Serious: Yes (Hospitalization)
  Sender: FDA-Public Use
  Company Number: CH-ROCHE-428720

PATIENT
  Age: 25 Year
  Sex: Male

DRUGS (3)
  1. CYMEVENE [Suspect]
     Indication: CYTOMEGALOVIRUS INFECTION
     Route: 065
     Dates: start: 20051215
  2. VALCYTE [Suspect]
     Indication: CYTOMEGALOVIRUS INFECTION
     Route: 065
     Dates: start: 20051115, end: 20051215
  3. IMMUNOSUPPRESSANT NOS [Concomitant]
     Indication: LYMPHOMA
     Dosage: DRUG REPORTED AS 'IMMUNOSUPPRESSIVE THERAPY'

REACTIONS (3)
  - CEREBELLAR SYNDROME [None]
  - COORDINATION ABNORMAL [None]
  - DIPLOPIA [None]
